FAERS Safety Report 8520378-7 (Version None)
Quarter: 2012Q3

REPORT INFORMATION
  Report Type: 
  Country: None (occurrence: None)
  Receive Date: 20120713
  Receipt Date: 20120713
  Transmission Date: 20120928
  Serious: Yes (Hospitalization)
  Sender: FDA-Public Use
  Company Number: None

PATIENT
  Age: 60 Year
  Sex: Male
  Weight: 73.3 kg

DRUGS (1)
  1. QUETIAPINE [Suspect]
     Indication: DELIRIUM
     Dosage: 75 MG HS PO
     Route: 048
     Dates: start: 20120506, end: 20120518

REACTIONS (1)
  - PANCREATITIS [None]
